FAERS Safety Report 8978933 (Version 5)
Quarter: 2013Q1

REPORT INFORMATION
  Report Type: Spontaneous
  Country: US (occurrence: US)
  Receive Date: 20121221
  Receipt Date: 20130329
  Transmission Date: 20140127
  Serious: Yes (Hospitalization, Other)
  Sender: FDA-Public Use
  Company Number: US-009507513-1103USA00925

PATIENT
  Sex: Female
  Weight: 54.42 kg

DRUGS (8)
  1. FOSAMAX [Suspect]
     Indication: OSTEOPENIA
     Dosage: 70 MG, UNK
     Route: 048
     Dates: start: 20001112, end: 20080404
  2. FOSAMAX [Suspect]
     Indication: OSTEOPENIA
     Dosage: 70 MG, UNK
     Route: 048
     Dates: start: 20080404, end: 20100616
  3. ALENDRONATE SODIUM [Suspect]
     Indication: OSTEOPENIA
     Dosage: 70 MG, UNK
     Dates: start: 20080404, end: 20100616
  4. PRILOSEC [Concomitant]
     Indication: PRODUCT USED FOR UNKNOWN INDICATION
     Dosage: UNK
     Route: 048
     Dates: start: 1996
  5. CALCIUM (UNSPECIFIED) [Concomitant]
     Indication: ROUTINE HEALTH MAINTENANCE
     Dosage: 650 MG, BID
     Dates: start: 1997
  6. VITAMIN D (UNSPECIFIED) [Concomitant]
     Indication: ROUTINE HEALTH MAINTENANCE
     Dosage: 500 MG, QD
     Dates: start: 1997
  7. VITAMINS (UNSPECIFIED) [Concomitant]
     Indication: ROUTINE HEALTH MAINTENANCE
     Dosage: 500 MG, QD
     Dates: start: 1997
  8. CORTICOSTEROIDS (UNSPECIFIED) [Concomitant]
     Indication: PRODUCT USED FOR UNKNOWN INDICATION
     Dosage: UNK
     Dates: start: 2000, end: 2010

REACTIONS (16)
  - Femur fracture [Recovered/Resolved]
  - Open reduction of fracture [Unknown]
  - Femur fracture [Unknown]
  - Convulsion [Unknown]
  - Iron deficiency anaemia [Unknown]
  - Fall [Unknown]
  - Removal of internal fixation [Unknown]
  - Medical device discomfort [Not Recovered/Not Resolved]
  - Low turnover osteopathy [Unknown]
  - Spinal column stenosis [Unknown]
  - Herpes zoster [Unknown]
  - Enchondroma [Unknown]
  - Sciatica [Unknown]
  - Tooth extraction [Unknown]
  - Muscle spasms [Unknown]
  - Back pain [Not Recovered/Not Resolved]
